FAERS Safety Report 9885276 (Version 1)
Quarter: 2014Q1

REPORT INFORMATION
  Report Type: Spontaneous
  Country: US (occurrence: US)
  Receive Date: 20140210
  Receipt Date: 20140210
  Transmission Date: 20141002
  Serious: No
  Sender: FDA-Public Use
  Company Number: US-PFIZER INC-2014035162

PATIENT
  Age: 83 Year
  Sex: Male

DRUGS (6)
  1. CELEBREX [Suspect]
     Indication: PROCEDURAL PAIN
     Dosage: 200 MG, UNK
  2. CELEBREX [Suspect]
     Indication: LOCAL SWELLING
  3. CELEBREX [Suspect]
     Indication: JOINT SWELLING
  4. ADVIL [Suspect]
     Indication: PAIN
     Dosage: 200 MG, UNK
  5. HYDROCHLOROTHIAZIDE [Suspect]
     Dosage: UNK
  6. FLOMAX [Suspect]
     Dosage: UNK

REACTIONS (1)
  - Hypertension [Unknown]
